FAERS Safety Report 9308907 (Version 1)
Quarter: 2013Q2

REPORT INFORMATION
  Report Type: Spontaneous
  Country: CA (occurrence: CA)
  Receive Date: 20130524
  Receipt Date: 20130524
  Transmission Date: 20140414
  Serious: Yes (Other)
  Sender: FDA-Public Use
  Company Number: CA-AMGEN-CANSP2012066162

PATIENT
  Age: 81 Year
  Sex: Female
  Weight: 66.82 kg

DRUGS (3)
  1. PROLIA [Suspect]
     Indication: OSTEOPOROSIS
     Dosage: 60 MG, UNK
     Dates: start: 20120920, end: 20121015
  2. PROLIA [Suspect]
     Indication: OSTEOARTHRITIS
  3. PROLIA [Suspect]
     Indication: ARTHRITIS

REACTIONS (16)
  - Lip swelling [Recovered/Resolved]
  - Swollen tongue [Recovered/Resolved]
  - Fatigue [Recovered/Resolved]
  - Nausea [Recovered/Resolved]
  - Abdominal pain upper [Recovered/Resolved]
  - Abdominal distension [Recovered/Resolved]
  - Dry mouth [Unknown]
  - Mouth haemorrhage [Unknown]
  - Deformity [Unknown]
  - Local swelling [Recovered/Resolved]
  - Dizziness [Not Recovered/Not Resolved]
  - Oral discomfort [Not Recovered/Not Resolved]
  - Paraesthesia [Recovered/Resolved]
  - Acne pustular [Unknown]
  - Pruritus [Unknown]
  - Swelling face [Unknown]
